FAERS Safety Report 6100484-7 (Version None)
Quarter: 2009Q1

REPORT INFORMATION
  Report Type: 
  Country: None (occurrence: None)
  Receive Date: 20090227
  Receipt Date: 20090227
  Transmission Date: 20090719
  Serious: Yes (Hospitalization)
  Sender: FDA-Public Use
  Company Number: None

PATIENT
  Age: 44 Year
  Sex: Male
  Weight: 122 kg

DRUGS (14)
  1. VANCOMYCIN [Suspect]
     Indication: ANAL ABSCESS
     Dosage: 1GM ONE TIME IV
     Route: 042
     Dates: start: 20081112
  2. VANCOMYCIN [Suspect]
     Indication: STAPHYLOCOCCAL ABSCESS
     Dosage: 1GM ONE TIME IV
     Route: 042
     Dates: start: 20081112
  3. VANCOMYCIN [Suspect]
     Indication: ANAL ABSCESS
     Dosage: 1800MG Q12H IV
     Route: 042
     Dates: start: 20081113, end: 20081121
  4. VANCOMYCIN [Suspect]
     Indication: STAPHYLOCOCCAL ABSCESS
     Dosage: 1800MG Q12H IV
     Route: 042
     Dates: start: 20081113, end: 20081121
  5. MORPHINE [Concomitant]
  6. ATENOLOL [Concomitant]
  7. BUPROPION HCL [Concomitant]
  8. GEMFIBROZIL [Concomitant]
  9. ZOLPIDEM [Concomitant]
  10. LISINOPRIL [Concomitant]
  11. SIMVASTATIN [Concomitant]
  12. ESCITALOPRAM [Concomitant]
  13. PERCOCET [Concomitant]
  14. INFLUENZA VACCINE [Concomitant]

REACTIONS (4)
  - DRUG LEVEL INCREASED [None]
  - HYPOXIA [None]
  - RENAL FAILURE ACUTE [None]
  - TUBULOINTERSTITIAL NEPHRITIS [None]
